FAERS Safety Report 5356784-1 (Version None)
Quarter: 2007Q2

REPORT INFORMATION
  Report Type: 
  Country: None (occurrence: None)
  Receive Date: 20070614
  Receipt Date: 20061222
  Transmission Date: 20071010
  Serious: No
  Sender: FDA-Public Use
  Company Number: US-ASTRAZENECA-2006UW28457

PATIENT
  Age: 61 Year
  Sex: Female
  Weight: 49 kg

DRUGS (12)
  1. ATACAND [Suspect]
     Indication: HYPERTENSION
     Route: 048
     Dates: start: 20061217
  2. ARIMIDEX [Concomitant]
     Route: 048
  3. CRESTOR [Concomitant]
     Route: 048
  4. NITROSTAT [Concomitant]
  5. ACTONEL [Concomitant]
  6. FOSAMAX [Concomitant]
  7. THEO-DUR [Concomitant]
  8. PREDNISONE TAB [Concomitant]
  9. SINGULAIR [Concomitant]
  10. ADVAIR DISKUS 100/50 [Concomitant]
  11. COMBIVENT [Concomitant]
  12. PLAVIX [Concomitant]

REACTIONS (1)
  - INSOMNIA [None]
